FAERS Safety Report 21181882 (Version 2)
Quarter: 2022Q3

REPORT INFORMATION
  Report Type: Spontaneous
  Country: BG (occurrence: BG)
  Receive Date: 20220806
  Receipt Date: 20220809
  Transmission Date: 20221027
  Serious: Yes (Life-Threatening)
  Sender: FDA-Public Use
  Company Number: BG-002147023-NVSC2022BG174971

PATIENT
  Age: 62 Year
  Sex: Female
  Weight: 113 kg

DRUGS (7)
  1. XOLAIR [Suspect]
     Active Substance: OMALIZUMAB
     Indication: Asthma
     Dosage: UNK, QMO (4 FLACONS)
     Route: 058
     Dates: start: 202006, end: 202207
  2. XARELTO [Concomitant]
     Active Substance: RIVAROXABAN
     Indication: Pulmonary embolism
     Dosage: 20 MG
  3. SERETIDE [Concomitant]
     Active Substance: FLUTICASONE PROPIONATE\SALMETEROL XINAFOATE
     Indication: Product used for unknown indication
     Dosage: UNK (50/500)
  4. SPIRIVA [Concomitant]
     Active Substance: TIOTROPIUM BROMIDE MONOHYDRATE
     Indication: Product used for unknown indication
     Dosage: UNK
  5. VENTOLIN [Concomitant]
     Active Substance: ALBUTEROL SULFATE
     Indication: Product used for unknown indication
     Dosage: UNK
  6. NEBIVOLOL [Concomitant]
     Active Substance: NEBIVOLOL
     Indication: Product used for unknown indication
     Dosage: UNK
  7. ROSUVASTATIN CALCIUM [Concomitant]
     Active Substance: ROSUVASTATIN CALCIUM
     Indication: Product used for unknown indication
     Dosage: UNK

REACTIONS (4)
  - Loss of consciousness [Recovered/Resolved]
  - Contusion [Recovered/Resolved]
  - Peripheral swelling [Recovered/Resolved]
  - Pruritus [Recovered/Resolved]

NARRATIVE: CASE EVENT DATE: 20220726
